FAERS Safety Report 10359546 (Version 2)
Quarter: 2014Q3

REPORT INFORMATION
  Report Type: Spontaneous
  Country: US (occurrence: US)
  Receive Date: 20140804
  Receipt Date: 20140808
  Transmission Date: 20150326
  Serious: Yes (Hospitalization, Other)
  Sender: FDA-Public Use
  Company Number: US-BAYER-2014-113650

PATIENT
  Age: 29 Year
  Sex: Female
  Weight: 69 kg

DRUGS (6)
  1. POLYETHYLENE GLYCOL 3350. [Concomitant]
     Active Substance: POLYETHYLENE GLYCOL 3350
     Dosage: UNK
     Route: 048
  2. OCELLA [Suspect]
     Active Substance: DROSPIRENONE\ETHINYL ESTRADIOL
  3. YASMIN [Suspect]
     Active Substance: DROSPIRENONE\ETHINYL ESTRADIOL
     Indication: CONTRACEPTION
     Dosage: UNK
  4. YAZ [Suspect]
     Active Substance: DROSPIRENONE\ETHINYL ESTRADIOL
  5. OXYGEN. [Concomitant]
     Active Substance: OXYGEN
     Dosage: DAILY DOSE 2 L
     Route: 045
     Dates: start: 20091004, end: 20091004
  6. GARDASIL [Concomitant]
     Active Substance: HUMAN PAPILLOMAVIRUS QUADRIVALENT (TYPES 6, 11, 16, AND 18) VACCINE, RECOMBINANT
     Dosage: UNK
     Dates: start: 20091004, end: 20091010

REACTIONS (5)
  - Injury [None]
  - Fear of disease [None]
  - Pulmonary embolism [None]
  - Thrombosis [None]
  - Pain [None]

NARRATIVE: CASE EVENT DATE: 200909
